FAERS Safety Report 13701415 (Version 1)
Quarter: 2017Q2

REPORT INFORMATION
  Report Type: Spontaneous
  Country: US (occurrence: US)
  Receive Date: 20170628
  Receipt Date: 20170628
  Transmission Date: 20170830
  Serious: Yes (Hospitalization)
  Sender: FDA-Public Use
  Company Number: None

PATIENT
  Age: 62 Year
  Sex: Female
  Weight: 82.8 kg

DRUGS (10)
  1. CONTRAVE [Suspect]
     Active Substance: BUPROPION HYDROCHLORIDE\NALTREXONE HYDROCHLORIDE
     Indication: OBESITY
     Dosage: ?          OTHER DOSE:GM;?
     Route: 048
     Dates: start: 20170525, end: 20170624
  2. FORTEO [Concomitant]
     Active Substance: TERIPARATIDE
  3. CHOLECALCIFEROL D3 [Concomitant]
  4. ZANAFLEX [Concomitant]
     Active Substance: TIZANIDINE HYDROCHLORIDE
  5. TRAZODONE [Concomitant]
     Active Substance: TRAZODONE HYDROCHLORIDE
  6. ESTRADIOL VIVELLE-DOT [Concomitant]
  7. BELVIQ [Concomitant]
     Active Substance: LORCASERIN HYDROCHLORIDE
  8. METFORMIN [Concomitant]
     Active Substance: METFORMIN HYDROCHLORIDE
  9. ARMOUR THYROID [Concomitant]
     Active Substance: THYROID, PORCINE
  10. SPIRONOLACTONE. [Concomitant]
     Active Substance: SPIRONOLACTONE

REACTIONS (1)
  - Transient ischaemic attack [None]

NARRATIVE: CASE EVENT DATE: 20170625
